FAERS Safety Report 7813663-5 (Version None)
Quarter: 2011Q4

REPORT INFORMATION
  Report Type: 
  Country: None (occurrence: None)
  Receive Date: 20111014
  Receipt Date: 20111005
  Transmission Date: 20120403
  Serious: Yes (Other)
  Sender: FDA-Public Use
  Company Number: US-BAYER-2011-095532

PATIENT
  Sex: Female

DRUGS (1)
  1. MIRENA [Suspect]
     Indication: HYPERPLASIA
     Dosage: 20 ?G/D, UNK
     Route: 015
     Dates: start: 20110708

REACTIONS (4)
  - UTERINE PERFORATION [None]
  - DEVICE EXPULSION [None]
  - VAGINAL HAEMORRHAGE [None]
  - DEVICE DISLOCATION [None]
